FAERS Safety Report 9919559 (Version 1)
Quarter: 2014Q1

REPORT INFORMATION
  Report Type: Spontaneous
  Country: US (occurrence: US)
  Receive Date: 20140224
  Receipt Date: 20140224
  Transmission Date: 20141002
  Serious: Yes (Other)
  Sender: FDA-Public Use
  Company Number: US-PFIZER INC-2014052649

PATIENT
  Age: 44 Year
  Sex: Female
  Weight: 86.2 kg

DRUGS (1)
  1. PRISTIQ [Suspect]
     Indication: DEPRESSION
     Dosage: 100 MG, DAILY

REACTIONS (2)
  - Arthropathy [Unknown]
  - Blood cholesterol increased [Unknown]
